FAERS Safety Report 6648192-8 (Version None)
Quarter: 2010Q1

REPORT INFORMATION
  Report Type: 
  Country: None (occurrence: None)
  Receive Date: 20100319
  Receipt Date: 20100304
  Transmission Date: 20100710
  Serious: Yes (Hospitalization)
  Sender: FDA-Public Use
  Company Number: 232304J10USA

PATIENT
  Age: 57 Year
  Sex: Female

DRUGS (3)
  1. REBIF [Suspect]
     Indication: MULTIPLE SCLEROSIS
     Dosage: 44 MCG, 3 IN 1 WEEKS, SUBCUTANEOUS
     Route: 058
     Dates: start: 20071121
  2. BLOOD PRESSURE MEDICATIONS (ANTIHYPERTENSIVES) [Suspect]
     Indication: BLOOD PRESSURE
  3. BACLOFEN [Concomitant]

REACTIONS (1)
  - HYPOTENSION [None]
